FAERS Safety Report 23409816 (Version 5)
Quarter: 2024Q1

REPORT INFORMATION
  Report Type: Spontaneous
  Country: US (occurrence: US)
  Receive Date: 20240117
  Receipt Date: 20240206
  Transmission Date: 20240410
  Serious: No
  Sender: FDA-Public Use
  Company Number: US-PFIZER INC-202400015330

PATIENT
  Age: 48 Year
  Sex: Male

DRUGS (1)
  1. CIBINQO [Suspect]
     Active Substance: ABROCITINIB
     Indication: Dermatitis atopic
     Dosage: 1 DF, 2X/DAY

REACTIONS (5)
  - Dermatitis atopic [Recovering/Resolving]
  - Product dose omission issue [Unknown]
  - Pruritus [Unknown]
  - Skin irritation [Unknown]
  - Off label use [Unknown]
